FAERS Safety Report 6876481-0 (Version None)
Quarter: 2010Q2

REPORT INFORMATION
  Report Type: 
  Country: None (occurrence: None)
  Receive Date: 20100610
  Receipt Date: 20100318
  Transmission Date: 20101027
  Serious: No
  Sender: FDA-Public Use
  Company Number: 2010SP016706

PATIENT
  Age: 53 Year
  Sex: Female

DRUGS (6)
  1. SAPHRIS [Suspect]
     Indication: BIPOLAR DISORDER
     Dosage: 5 MG;BID;SL
     Dates: start: 20100107, end: 20100216
  2. GLIPIZIDE [Concomitant]
  3. METFORMIN HCL [Concomitant]
  4. CELEXA [Concomitant]
  5. SEROQUEL [Concomitant]
  6. XANAX [Concomitant]

REACTIONS (7)
  - ANXIETY [None]
  - BLOOD GLUCOSE INCREASED [None]
  - BLOOD PRESSURE INCREASED [None]
  - FATIGUE [None]
  - PALPITATIONS [None]
  - PYREXIA [None]
  - WEIGHT INCREASED [None]
